FAERS Safety Report 6763357-2 (Version None)
Quarter: 2010Q2

REPORT INFORMATION
  Report Type: 
  Country: None (occurrence: None)
  Receive Date: 20100610
  Receipt Date: 20100420
  Transmission Date: 20101027
  Serious: Yes (Hospitalization, Other)
  Sender: FDA-Public Use
  Company Number: US-BAYER-200941154NA

PATIENT
  Age: 38 Year
  Sex: Female
  Weight: 67 kg

DRUGS (1)
  1. YASMIN [Suspect]
     Indication: PREMENSTRUAL SYNDROME
     Route: 048
     Dates: start: 20070801, end: 20071101

REACTIONS (5)
  - DYSPNOEA [None]
  - PAIN [None]
  - PRODUCTIVE COUGH [None]
  - PULMONARY EMBOLISM [None]
  - PULMONARY INFARCTION [None]
